FAERS Safety Report 7340069-8 (Version None)
Quarter: 2011Q1

REPORT INFORMATION
  Report Type: 
  Country: None (occurrence: None)
  Receive Date: 20110309
  Receipt Date: 20110223
  Transmission Date: 20110831
  Serious: No
  Sender: FDA-Public Use
  Company Number: PHHY2011US15283

PATIENT
  Sex: Male
  Weight: 86.168 kg

DRUGS (9)
  1. ENALAPRIL MALEATE [Concomitant]
  2. TASIGNA [Suspect]
     Dosage: 200 MG, BID
  3. METFORMIN [Concomitant]
  4. CENTRUM [Concomitant]
  5. HYDROCHLOROTHIAZIDE [Concomitant]
  6. TASIGNA [Suspect]
     Indication: NEOPLASM MALIGNANT
     Dosage: 400 MG, BID
     Route: 048
     Dates: start: 20110108
  7. FISH OIL [Concomitant]
  8. TASIGNA [Suspect]
     Dosage: 200 MG, BID
  9. DIOVAN [Concomitant]

REACTIONS (4)
  - INCORRECT DOSE ADMINISTERED [None]
  - MUSCLE SPASMS [None]
  - DIARRHOEA [None]
  - LETHARGY [None]
